FAERS Safety Report 8461703-5 (Version None)
Quarter: 2012Q2

REPORT INFORMATION
  Report Type: 
  Country: None (occurrence: None)
  Receive Date: 20120625
  Receipt Date: 20120620
  Transmission Date: 20120825
  Serious: Yes (Other)
  Sender: FDA-Public Use
  Company Number: PHHY2012CH053080

PATIENT
  Sex: Female

DRUGS (1)
  1. DARIFENACIN HYDROBROMIDE [Suspect]
     Indication: HYPERTONIC BLADDER
     Dosage: 7.5 MG, DAILY
     Dates: start: 20100501

REACTIONS (2)
  - CYSTITIS [None]
  - HAEMATURIA [None]
